FAERS Safety Report 7626782-3 (Version None)
Quarter: 2011Q3

REPORT INFORMATION
  Report Type: 
  Country: None (occurrence: None)
  Receive Date: 20110713
  Receipt Date: 20110707
  Transmission Date: 20111222
  Serious: Yes (Other)
  Sender: FDA-Public Use
  Company Number: 201110648

PATIENT
  Age: 38 Year
  Sex: Male

DRUGS (1)
  1. LIORESAL [Suspect]
     Indication: MUSCLE SPASTICITY
     Dosage: MCG, DAILY, INTRATHECAL
     Route: 037

REACTIONS (5)
  - MENINGITIS [None]
  - DEVICE RELATED INFECTION [None]
  - MUSCLE SPASTICITY [None]
  - STAPHYLOCOCCAL INFECTION [None]
  - PYREXIA [None]
